FAERS Safety Report 19057118 (Version 1)
Quarter: 2021Q1

REPORT INFORMATION
  Report Type: Spontaneous
  Country: US (occurrence: US)
  Receive Date: 20210324
  Receipt Date: 20210324
  Transmission Date: 20210420
  Serious: No
  Sender: FDA-Public Use
  Company Number: US-HISAMITSU-2020-US-014393

PATIENT
  Age: 56 Year
  Sex: Female

DRUGS (2)
  1. SALONPAS PAIN RELIEF [Suspect]
     Active Substance: MENTHOL\METHYL SALICYLATE
     Indication: ANALGESIC THERAPY
     Dosage: APPLIED TO BACK ONE TIME
     Route: 061
     Dates: start: 20200712, end: 20200713
  2. ADVIL [Concomitant]
     Active Substance: IBUPROFEN
     Dosage: AS NEEDED FOR PAIN

REACTIONS (1)
  - Pain [Recovered/Resolved]

NARRATIVE: CASE EVENT DATE: 20200713
